FAERS Safety Report 20359135 (Version 3)
Quarter: 2022Q1

REPORT INFORMATION
  Report Type: Report from Study
  Country: FR (occurrence: FR)
  Receive Date: 20220120
  Receipt Date: 20220216
  Transmission Date: 20220423
  Serious: Yes (Hospitalization, Other)
  Sender: FDA-Public Use
  Company Number: FR-SAMSUNG BIOEPIS-SB-2022-01226

PATIENT
  Age: 35 Year
  Sex: Male
  Weight: 86 kg

DRUGS (4)
  1. INFLIXIMAB [Suspect]
     Active Substance: INFLIXIMAB
     Indication: Crohn^s disease
     Dosage: VIAL (5MG/KG)
     Route: 042
     Dates: start: 20180418, end: 20200219
  2. AZATHIOPRINE SODIUM [Concomitant]
     Active Substance: AZATHIOPRINE SODIUM
     Indication: Product used for unknown indication
     Dosage: UNKNOWN
     Route: 065
  3. DAIVOBET [Concomitant]
     Active Substance: BETAMETHASONE DIPROPIONATE\CALCIPOTRIENE
     Indication: Product used for unknown indication
     Dosage: UNKNOWN (1 APPLICATION PER DAY)
     Route: 065
  4. DOXYCYCLINE [Concomitant]
     Active Substance: DOXYCYCLINE
     Indication: Product used for unknown indication
     Route: 065

REACTIONS (10)
  - Pulmonary granuloma [Recovered/Resolved]
  - Rectal haemorrhage [Recovered/Resolved]
  - Exposure to SARS-CoV-2 [Unknown]
  - Psoriasis [Recovered/Resolved]
  - Lymphopenia [Recovered/Resolved]
  - Abdominal pain [Recovered/Resolved]
  - Weight increased [Recovered/Resolved]
  - Colitis [Recovered/Resolved]
  - Anal fistula [Recovered/Resolved]
  - Pseudopolyp [Unknown]

NARRATIVE: CASE EVENT DATE: 20200101
